FAERS Safety Report 8091281 (Version 2)
Quarter: 2013Q1

REPORT INFORMATION
  Report Type: Spontaneous
  Country: JP (occurrence: None)
  Receive Date: 20110808
  Receipt Date: 20121221
  Transmission Date: 20140127
  Serious: Yes (Other)
  Sender: FDA-Public Use
  Company Number: JP-ACCORD-010168

PATIENT
  Age: 67 Year
  Sex: 0

DRUGS (2)
  1. PACLITAXEL [Suspect]
     Indication: APOCRINE BREAST CARCINOMA
  2. DOXORUBICIN (DOXORUBICIN) (DOXORUBICIN) [Suspect]
     Indication: APOCRINE BREAST CARCINOMA

REACTIONS (6)
  - Pain [None]
  - Asthenia [None]
  - Myalgia [None]
  - Arthralgia [None]
  - Walking aid user [None]
  - Drug ineffective [None]
